FAERS Safety Report 8421876-7 (Version None)
Quarter: 2012Q2

REPORT INFORMATION
  Report Type: 
  Country: None (occurrence: None)
  Receive Date: 20120608
  Receipt Date: 20120604
  Transmission Date: 20120825
  Serious: Yes (Congenital Anomaly, Other)
  Sender: FDA-Public Use
  Company Number: FR-BAYER-2012-055822

PATIENT
  Sex: Male
  Weight: 1.38 kg

DRUGS (1)
  1. MIRENA [Suspect]
     Dosage: UNK
     Route: 064
     Dates: start: 20100101

REACTIONS (2)
  - INGUINAL HERNIA [None]
  - PREMATURE BABY [None]
